FAERS Safety Report 9087951 (Version 1)
Quarter: 2013Q1

REPORT INFORMATION
  Report Type: Spontaneous
  Country: US (occurrence: US)
  Receive Date: 20130201
  Receipt Date: 20130201
  Transmission Date: 20140127
  Serious: Yes (Death, Other)
  Sender: FDA-Public Use
  Company Number: US-ROCHE-1046928

PATIENT
  Age: 40 Year
  Sex: Female
  Weight: 74.91 kg

DRUGS (1)
  1. ACCUTANE [Suspect]
     Indication: ACNE
     Route: 048
     Dates: start: 199210, end: 199611

REACTIONS (8)
  - Death [Fatal]
  - Crohn^s disease [Unknown]
  - Inflammatory bowel disease [Unknown]
  - Diverticulitis [Unknown]
  - Depression [Unknown]
  - Irritable bowel syndrome [Unknown]
  - Dry skin [Unknown]
  - Alopecia [Unknown]
